FAERS Safety Report 21240774 (Version 2)
Quarter: 2022Q4

REPORT INFORMATION
  Report Type: Other
  Country: FR (occurrence: FR)
  Receive Date: 20220823
  Receipt Date: 20221202
  Transmission Date: 20230113
  Serious: No
  Sender: FDA-Public Use
  Company Number: FR-TOLMAR, INC.-22FR036080

PATIENT
  Age: 73 Year
  Sex: Male
  Weight: 82 kg

DRUGS (7)
  1. ELIGARD [Suspect]
     Active Substance: LEUPROLIDE ACETATE
     Indication: Prostate cancer
     Dosage: 22.5 MILLIGRAM, Q 3 MONTH
  2. ELIGARD [Suspect]
     Active Substance: LEUPROLIDE ACETATE
     Dosage: 22.5 MILLIGRAM, Q 3 MONTH
     Dates: start: 20220315
  3. RADIATION THERAPY [Concomitant]
     Active Substance: RADIATION THERAPY
     Indication: Product used for unknown indication
     Dosage: UNK
  4. CASODEX [Concomitant]
     Active Substance: BICALUTAMIDE
     Indication: Product used for unknown indication
  5. ALFUZOSIN [Concomitant]
     Active Substance: ALFUZOSIN
     Indication: Product used for unknown indication
     Dosage: UNK
  6. UNSPECIFIED INGREDIENT [Concomitant]
     Active Substance: UNSPECIFIED INGREDIENT
     Indication: Product used for unknown indication
  7. UNSPECIFIED INGREDIENT [Concomitant]
     Active Substance: UNSPECIFIED INGREDIENT
     Indication: Product used for unknown indication
     Dosage: UNK

REACTIONS (1)
  - Hot flush [Not Recovered/Not Resolved]

NARRATIVE: CASE EVENT DATE: 20220610
